FAERS Safety Report 4690621-3 (Version None)
Quarter: 2005Q2

REPORT INFORMATION
  Report Type: 
  Country: None (occurrence: None)
  Receive Date: 20050615
  Receipt Date: 20050128
  Transmission Date: 20051028
  Serious: Yes (Hospitalization, Other)
  Sender: FDA-Public Use
  Company Number: BE-BRISTOL-MYERS SQUIBB COMPANY-12841250

PATIENT
  Age: 41 Year
  Sex: Female
  Weight: 87 kg

DRUGS (4)
  1. ATAZANAVIR [Suspect]
     Indication: HIV INFECTION
     Route: 048
     Dates: start: 20030203
  2. COMBIVIR [Suspect]
     Indication: HIV INFECTION
     Dosage: 300 MG/ 150 MG TWICE DAILY
     Dates: start: 20030203, end: 20050124
  3. ROCEPHIN [Concomitant]
     Indication: PYREXIA
     Route: 042
     Dates: start: 20050124, end: 20050128
  4. ATROVENT [Concomitant]

REACTIONS (2)
  - CARDIAC FAILURE [None]
  - CARDIOMYOPATHY [None]
